FAERS Safety Report 18398861 (Version 1)
Quarter: 2020Q4

REPORT INFORMATION
  Report Type: Spontaneous
  Country: CA (occurrence: CA)
  Receive Date: 20201019
  Receipt Date: 20201019
  Transmission Date: 20210114
  Serious: Yes (Other)
  Sender: FDA-Public Use
  Company Number: CA-SAMSUNG BIOEPIS-SB-2020-31702

PATIENT
  Age: 55 Year
  Sex: Male

DRUGS (1)
  1. INFLIXIMAB [Suspect]
     Active Substance: INFLIXIMAB
     Indication: RHEUMATOID ARTHRITIS
     Route: 042

REACTIONS (7)
  - Joint effusion [Unknown]
  - Blood pressure fluctuation [Unknown]
  - Back pain [Unknown]
  - Musculoskeletal pain [Unknown]
  - Off label use [Unknown]
  - Oedema peripheral [Unknown]
  - Intentional product use issue [Unknown]
